FAERS Safety Report 13080232 (Version 1)
Quarter: 2017Q1

REPORT INFORMATION
  Report Type: Spontaneous
  Country: FR (occurrence: FR)
  Receive Date: 20170103
  Receipt Date: 20170103
  Transmission Date: 20170428
  Serious: Yes (Other)
  Sender: FDA-Public Use
  Company Number: PHHY2016FR180591

PATIENT
  Age: 71 Year
  Sex: Female

DRUGS (3)
  1. UVEDOSE [Concomitant]
     Active Substance: CHOLECALCIFEROL
     Indication: POLYMYALGIA RHEUMATICA
     Dosage: UNK, EVERY THREE MONTHS
     Route: 065
  2. ACLASTA [Suspect]
     Active Substance: ZOLEDRONIC ACID
     Indication: OSTEOPOROSIS
     Dosage: 5 MG,Q12MO (YEARLY)
     Route: 042
     Dates: start: 201607, end: 201607
  3. CORTANCYL [Concomitant]
     Active Substance: PREDNISONE
     Indication: POLYMYALGIA RHEUMATICA
     Dosage: 5 MG, QD
     Route: 065

REACTIONS (4)
  - Weight decreased [Recovered/Resolved]
  - Headache [Recovered/Resolved]
  - Pyrexia [Recovered/Resolved]
  - Nausea [Recovered/Resolved]

NARRATIVE: CASE EVENT DATE: 201607
